FAERS Safety Report 7801599-5 (Version None)
Quarter: 2011Q4

REPORT INFORMATION
  Report Type: 
  Country: None (occurrence: None)
  Receive Date: 20111006
  Receipt Date: 20111006
  Transmission Date: 20120403
  Serious: Yes (Hospitalization)
  Sender: FDA-Public Use
  Company Number: None

PATIENT
  Age: 68 Year
  Sex: Male
  Weight: 80.8 kg

DRUGS (5)
  1. MICARDIS [Concomitant]
  2. NAPROXEN [Suspect]
  3. KEFLEX [Concomitant]
  4. VIT D3 [Concomitant]
  5. ASPIRIN [Suspect]

REACTIONS (2)
  - DUODENAL ULCER HAEMORRHAGE [None]
  - HAEMATOCRIT DECREASED [None]
